FAERS Safety Report 12250217 (Version 1)
Quarter: 2016Q2

REPORT INFORMATION
  Report Type: Spontaneous
  Country: IT (occurrence: IT)
  Receive Date: 20160408
  Receipt Date: 20160408
  Transmission Date: 20160815
  Serious: Yes (Hospitalization)
  Sender: FDA-Public Use
  Company Number: IT-BAYER-2016-063033

PATIENT
  Age: 85 Year
  Sex: Female

DRUGS (9)
  1. CLEXANE [Suspect]
     Active Substance: ENOXAPARIN SODIUM
     Dosage: DAILY DOSE 8000 DF
     Route: 048
     Dates: start: 20160215, end: 20160309
  2. PANTOPRAZOLE [Concomitant]
     Active Substance: PANTOPRAZOLE SODIUM
  3. CARDICOR [Concomitant]
     Active Substance: BISOPROLOL
  4. RANOLAZINE [Concomitant]
     Active Substance: RANOLAZINE
  5. COUMADIN [Suspect]
     Active Substance: WARFARIN SODIUM
     Dosage: DAILY DOSE 5 MG
     Route: 048
     Dates: start: 20160215, end: 20160309
  6. CARDIOASPIRIN [Suspect]
     Active Substance: ASPIRIN
     Dosage: DAILY DOSE 100 MG
     Route: 048
     Dates: start: 20100101, end: 20160309
  7. CRESTOR [Concomitant]
     Active Substance: ROSUVASTATIN CALCIUM
  8. PERINDOPRIL [Concomitant]
     Active Substance: PERINDOPRIL
  9. FUROSEMIDE. [Concomitant]
     Active Substance: FUROSEMIDE

REACTIONS (2)
  - Intra-abdominal haematoma [Recovered/Resolved]
  - International normalised ratio increased [Recovered/Resolved]

NARRATIVE: CASE EVENT DATE: 20160309
